FAERS Safety Report 5339212-1 (Version None)
Quarter: 2007Q2

REPORT INFORMATION
  Report Type: 
  Country: None (occurrence: None)
  Receive Date: 20070330
  Receipt Date: 20060622
  Transmission Date: 20071010
  Serious: No
  Sender: FDA-Public Use
  Company Number: 2006UW13253

PATIENT
  Sex: Female

DRUGS (1)
  1. ZESTRIL [Suspect]
     Dosage: 2.5 MG PO
     Route: 048
     Dates: start: 19980101

REACTIONS (2)
  - BIOPSY LIVER ABNORMAL [None]
  - HEPATIC ENZYME INCREASED [None]
